FAERS Safety Report 17159647 (Version 8)
Quarter: 2022Q4

REPORT INFORMATION
  Report Type: Spontaneous
  Country: US (occurrence: US)
  Receive Date: 20191216
  Receipt Date: 20221208
  Transmission Date: 20230113
  Serious: Yes (Other)
  Sender: FDA-Public Use
  Company Number: US-PFIZER INC-2019540233

PATIENT
  Age: 75 Year
  Sex: Female

DRUGS (1)
  1. XELJANZ XR [Suspect]
     Active Substance: TOFACITINIB CITRATE
     Dosage: 11 MG, 1X/DAY (QD)
     Route: 048
     Dates: end: 202204

REACTIONS (7)
  - Dementia [Not Recovered/Not Resolved]
  - Rheumatic disorder [Unknown]
  - Urinary tract infection [Unknown]
  - Alopecia [Unknown]
  - Muscular weakness [Unknown]
  - Arthritis [Unknown]
  - Cognitive disorder [Not Recovered/Not Resolved]
